FAERS Safety Report 9856085 (Version 1)
Quarter: 2014Q1

REPORT INFORMATION
  Report Type: Spontaneous
  Country: AU (occurrence: AU)
  Receive Date: 20140130
  Receipt Date: 20140130
  Transmission Date: 20141002
  Serious: Yes (Other)
  Sender: FDA-Public Use
  Company Number: AU-MYLANLABS-2014S1001382

PATIENT
  Age: 17 Year
  Sex: Female

DRUGS (2)
  1. OLANZAPINE [Suspect]
     Indication: SCHIZOPHRENIA
     Route: 065
  2. QUETIAPINE [Suspect]
     Indication: SCHIZOPHRENIA
     Route: 065

REACTIONS (3)
  - Tardive dyskinesia [Recovered/Resolved]
  - Dizziness [Unknown]
  - Fall [Unknown]
